FAERS Safety Report 26035626 (Version 1)
Quarter: 2025Q4

REPORT INFORMATION
  Report Type: Spontaneous
  Country: US (occurrence: US)
  Receive Date: 20251112
  Receipt Date: 20251112
  Transmission Date: 20260119
  Serious: Yes (Other)
  Sender: BRISTOL-MYERS SQUIBB COMPANY
  Company Number: US-BRISTOL-MYERS SQUIBB COMPANY-2025-150330

PATIENT
  Age: 73 Year
  Sex: Male

DRUGS (1)
  1. LENALIDOMIDE [Suspect]
     Active Substance: LENALIDOMIDE
     Indication: Plasma cell myeloma

REACTIONS (7)
  - Arthropathy [Unknown]
  - Shoulder fracture [Unknown]
  - Therapy interrupted [Unknown]
  - Product prescribing issue [Unknown]
  - Conduction disorder [Unknown]
  - Product use issue [Unknown]
  - Nervousness [Unknown]

NARRATIVE: CASE EVENT DATE: 20251001
